FAERS Safety Report 8269535-8 (Version None)
Quarter: 2012Q2

REPORT INFORMATION
  Report Type: 
  Country: None (occurrence: None)
  Receive Date: 20120409
  Receipt Date: 20120327
  Transmission Date: 20120825
  Serious: Yes (Death, Other)
  Sender: FDA-Public Use
  Company Number: PH-BAXTER-2012BAX001328

PATIENT
  Sex: Male

DRUGS (1)
  1. DIANEAL PD-2 W/ DEXTROSE 1.5% [Suspect]
     Route: 033
     Dates: start: 20111221

REACTIONS (5)
  - MYOCARDIAL ISCHAEMIA [None]
  - OEDEMA [None]
  - ASTHENIA [None]
  - CARDIO-RESPIRATORY ARREST [None]
  - DYSPNOEA [None]
